FAERS Safety Report 4527459-3 (Version None)
Quarter: 2004Q4

REPORT INFORMATION
  Report Type: 
  Country: None (occurrence: None)
  Receive Date: 20041130
  Receipt Date: 20040913
  Transmission Date: 20050328
  Serious: No
  Sender: FDA-Public Use
  Company Number: WAES 0409USA01247

PATIENT
  Sex: 0

DRUGS (1)
  1. ZETIA [Suspect]
     Dosage: PO
     Route: 048
     Dates: start: 20040301

REACTIONS (1)
  - WEIGHT DECREASED [None]
